FAERS Safety Report 13711128 (Version 2)
Quarter: 2017Q3

REPORT INFORMATION
  Report Type: Spontaneous
  Country: US (occurrence: US)
  Receive Date: 20170703
  Receipt Date: 20170707
  Transmission Date: 20171127
  Serious: Yes (Other)
  Sender: FDA-Public Use
  Company Number: US-ASTELLAS-2017US017573

PATIENT
  Age: 81 Year
  Sex: Female

DRUGS (5)
  1. CITALOPRAM [Concomitant]
     Active Substance: CITALOPRAM HYDROBROMIDE
     Indication: PRODUCT USED FOR UNKNOWN INDICATION
     Dosage: UNK UNK, UNKNOWN FREQ.
     Route: 065
  2. MYRBETRIQ [Suspect]
     Active Substance: MIRABEGRON
     Indication: HYPERTONIC BLADDER
     Route: 065
     Dates: start: 20170206, end: 20170504
  3. MYRBETRIQ [Suspect]
     Active Substance: MIRABEGRON
     Dosage: UNKNOWN DOSE (HALF THE AMOUNT), AS NEEDED (UNCLEAR HALF THE DOSE OR HALF THE QUANTITY)
     Route: 065
  4. MYRBETRIQ [Suspect]
     Active Substance: MIRABEGRON
     Dosage: 25 MG (HALF TABLET OF 50 MG), ONCE DAILY
     Route: 065
     Dates: start: 20170505, end: 20170522
  5. LORAZEPAM. [Concomitant]
     Active Substance: LORAZEPAM
     Indication: PRODUCT USED FOR UNKNOWN INDICATION
     Dosage: UNK UNK, UNKNOWN FREQ.
     Route: 065

REACTIONS (12)
  - Intentional product misuse [Unknown]
  - Somnolence [Recovering/Resolving]
  - Lethargy [Recovering/Resolving]
  - Inappropriate schedule of drug administration [Unknown]
  - Mental disorder [Unknown]
  - Laziness [Recovering/Resolving]
  - Somatic symptom disorder [Unknown]
  - Depression [Recovering/Resolving]
  - Wrong technique in product usage process [Unknown]
  - Anxiety [Unknown]
  - Constipation [Unknown]
  - Treatment noncompliance [Unknown]

NARRATIVE: CASE EVENT DATE: 201703
